FAERS Safety Report 6789191-5 (Version None)
Quarter: 2010Q2

REPORT INFORMATION
  Report Type: 
  Country: None (occurrence: None)
  Receive Date: 20100623
  Receipt Date: 20080808
  Transmission Date: 20101027
  Serious: No
  Sender: FDA-Public Use
  Company Number: US-PFIZER INC-2008055487

PATIENT
  Sex: Female

DRUGS (2)
  1. GEODON [Suspect]
     Dates: start: 20080601
  2. ANTIDEPRESSANTS [Concomitant]
     Indication: DEPRESSION

REACTIONS (2)
  - DYSTONIA [None]
  - MUSCLE RIGIDITY [None]
